FAERS Safety Report 9099757 (Version 1)
Quarter: 2013Q1

REPORT INFORMATION
  Report Type: Report from Study
  Country: TW (occurrence: TW)
  Receive Date: 20130214
  Receipt Date: 20130214
  Transmission Date: 20140127
  Serious: Yes (Hospitalization)
  Sender: FDA-Public Use
  Company Number: TW-JNJFOC-20070700198

PATIENT
  Age: 38 Year
  Sex: Female
  Weight: 53 kg

DRUGS (59)
  1. GOLIMUMAB [Suspect]
     Indication: RHEUMATOID ARTHRITIS
     Route: 058
     Dates: start: 20070503
  2. GOLIMUMAB [Suspect]
     Indication: RHEUMATOID ARTHRITIS
     Route: 058
     Dates: start: 20070404
  3. GOLIMUMAB [Suspect]
     Indication: RHEUMATOID ARTHRITIS
     Route: 058
     Dates: start: 20070628
  4. GOLIMUMAB [Suspect]
     Indication: RHEUMATOID ARTHRITIS
     Route: 058
     Dates: start: 20070531
  5. GOLIMUMAB [Suspect]
     Indication: RHEUMATOID ARTHRITIS
     Route: 058
     Dates: start: 20070207
  6. GOLIMUMAB [Suspect]
     Indication: RHEUMATOID ARTHRITIS
     Route: 058
     Dates: start: 20070308
  7. PLACEBO [Suspect]
     Indication: RHEUMATOID ARTHRITIS
     Route: 058
     Dates: start: 20061120
  8. PLACEBO [Suspect]
     Indication: RHEUMATOID ARTHRITIS
     Route: 058
     Dates: start: 20061214
  9. PLACEBO [Suspect]
     Indication: RHEUMATOID ARTHRITIS
     Route: 058
     Dates: start: 20070111
  10. PLACEBO [Suspect]
     Indication: RHEUMATOID ARTHRITIS
     Route: 058
     Dates: start: 20061018
  11. METHOTREXATE [Suspect]
     Indication: RHEUMATOID ARTHRITIS
     Dosage: WEEK 15
     Route: 048
     Dates: start: 20070130
  12. METHOTREXATE [Suspect]
     Indication: RHEUMATOID ARTHRITIS
     Dosage: WEEK 36
     Route: 048
     Dates: start: 20070710
  13. METHOTREXATE [Suspect]
     Indication: RHEUMATOID ARTHRITIS
     Dosage: WEEK 36
     Route: 048
     Dates: start: 20070703
  14. METHOTREXATE [Suspect]
     Indication: RHEUMATOID ARTHRITIS
     Dosage: WEEK 36
     Route: 048
     Dates: start: 20070626
  15. METHOTREXATE [Suspect]
     Indication: RHEUMATOID ARTHRITIS
     Dosage: WEEK 35
     Route: 048
     Dates: start: 20070619
  16. METHOTREXATE [Suspect]
     Indication: RHEUMATOID ARTHRITIS
     Dosage: WEEK 34
     Route: 048
     Dates: start: 20070612
  17. METHOTREXATE [Suspect]
     Indication: RHEUMATOID ARTHRITIS
     Dosage: WEEK 33
     Route: 048
     Dates: start: 20070605
  18. METHOTREXATE [Suspect]
     Indication: RHEUMATOID ARTHRITIS
     Dosage: WEEK 32
     Route: 048
     Dates: start: 20070529
  19. METHOTREXATE [Suspect]
     Indication: RHEUMATOID ARTHRITIS
     Dosage: WEEK 31
     Route: 048
     Dates: start: 20070522
  20. METHOTREXATE [Suspect]
     Indication: RHEUMATOID ARTHRITIS
     Dosage: WEEK 30
     Route: 048
     Dates: start: 20070515
  21. METHOTREXATE [Suspect]
     Indication: RHEUMATOID ARTHRITIS
     Dosage: WEEK 29
     Route: 048
     Dates: start: 20070508
  22. METHOTREXATE [Suspect]
     Indication: RHEUMATOID ARTHRITIS
     Dosage: WEEK 0-4
     Route: 048
     Dates: start: 20060921
  23. METHOTREXATE [Suspect]
     Indication: RHEUMATOID ARTHRITIS
     Dosage: WEEK 0-3
     Route: 048
     Dates: start: 20060928
  24. METHOTREXATE [Suspect]
     Indication: RHEUMATOID ARTHRITIS
     Dosage: WEEK 0-2
     Route: 048
     Dates: start: 20061005
  25. METHOTREXATE [Suspect]
     Indication: RHEUMATOID ARTHRITIS
     Dosage: WEEK 0-1
     Route: 048
     Dates: start: 20061012
  26. METHOTREXATE [Suspect]
     Indication: RHEUMATOID ARTHRITIS
     Dosage: WEEK 0
     Route: 048
     Dates: start: 20061019
  27. METHOTREXATE [Suspect]
     Indication: RHEUMATOID ARTHRITIS
     Dosage: WEEK 1
     Route: 048
     Dates: start: 20061026
  28. METHOTREXATE [Suspect]
     Indication: RHEUMATOID ARTHRITIS
     Dosage: WEEK 2
     Route: 048
     Dates: start: 20061102
  29. METHOTREXATE [Suspect]
     Indication: RHEUMATOID ARTHRITIS
     Dosage: WEEK 3
     Route: 048
     Dates: start: 20061109
  30. METHOTREXATE [Suspect]
     Indication: RHEUMATOID ARTHRITIS
     Dosage: WEEK 4
     Route: 048
     Dates: start: 20061116
  31. METHOTREXATE [Suspect]
     Indication: RHEUMATOID ARTHRITIS
     Dosage: WEEK 5
     Route: 048
     Dates: start: 20061123
  32. METHOTREXATE [Suspect]
     Indication: RHEUMATOID ARTHRITIS
     Dosage: WEEK 6
     Route: 048
     Dates: start: 20061130
  33. METHOTREXATE [Suspect]
     Indication: RHEUMATOID ARTHRITIS
     Dosage: WEEK 7
     Route: 048
     Dates: start: 20061207
  34. METHOTREXATE [Suspect]
     Indication: RHEUMATOID ARTHRITIS
     Dosage: WEEK 8
     Route: 048
     Dates: start: 20061214
  35. METHOTREXATE [Suspect]
     Indication: RHEUMATOID ARTHRITIS
     Dosage: WEEK 9
     Route: 048
     Dates: start: 20061221
  36. METHOTREXATE [Suspect]
     Indication: RHEUMATOID ARTHRITIS
     Dosage: WEEK 10
     Route: 048
     Dates: start: 20061228
  37. METHOTREXATE [Suspect]
     Indication: RHEUMATOID ARTHRITIS
     Dosage: WEEK 11
     Route: 048
     Dates: start: 20070104
  38. METHOTREXATE [Suspect]
     Indication: RHEUMATOID ARTHRITIS
     Dosage: WEEK 12
     Route: 048
     Dates: start: 20070111
  39. METHOTREXATE [Suspect]
     Indication: RHEUMATOID ARTHRITIS
     Dosage: WEEK 13
     Route: 048
     Dates: start: 20070116
  40. METHOTREXATE [Suspect]
     Indication: RHEUMATOID ARTHRITIS
     Dosage: WEEK 14
     Route: 048
     Dates: start: 20070123
  41. METHOTREXATE [Suspect]
     Indication: RHEUMATOID ARTHRITIS
     Dosage: WEEK 16
     Route: 048
     Dates: start: 20070206
  42. METHOTREXATE [Suspect]
     Indication: RHEUMATOID ARTHRITIS
     Dosage: WEEK 17
     Route: 048
     Dates: start: 20070213
  43. METHOTREXATE [Suspect]
     Indication: RHEUMATOID ARTHRITIS
     Dosage: WEEK 18
     Route: 048
     Dates: start: 20070220
  44. METHOTREXATE [Suspect]
     Indication: RHEUMATOID ARTHRITIS
     Dosage: WEEK 19
     Route: 048
     Dates: start: 20070227
  45. METHOTREXATE [Suspect]
     Indication: RHEUMATOID ARTHRITIS
     Dosage: WEEK 20
     Route: 048
     Dates: start: 20070306
  46. METHOTREXATE [Suspect]
     Indication: RHEUMATOID ARTHRITIS
     Dosage: WEEK 21
     Route: 048
     Dates: start: 20070313
  47. METHOTREXATE [Suspect]
     Indication: RHEUMATOID ARTHRITIS
     Dosage: WEEK 22
     Route: 048
     Dates: start: 20070320
  48. METHOTREXATE [Suspect]
     Indication: RHEUMATOID ARTHRITIS
     Dosage: WEEK 23
     Route: 048
     Dates: start: 20070327
  49. METHOTREXATE [Suspect]
     Indication: RHEUMATOID ARTHRITIS
     Dosage: WEEK 24
     Route: 048
     Dates: start: 20070403
  50. METHOTREXATE [Suspect]
     Indication: RHEUMATOID ARTHRITIS
     Dosage: WEEK 25
     Route: 048
     Dates: start: 20070410
  51. METHOTREXATE [Suspect]
     Indication: RHEUMATOID ARTHRITIS
     Dosage: WEEK 26
     Route: 048
     Dates: start: 20070417
  52. METHOTREXATE [Suspect]
     Indication: RHEUMATOID ARTHRITIS
     Dosage: WEEK 27
     Route: 048
     Dates: start: 20070424
  53. METHOTREXATE [Suspect]
     Indication: RHEUMATOID ARTHRITIS
     Dosage: WEEK 28
     Route: 048
     Dates: start: 20070501
  54. FOLIC ACID [Concomitant]
     Route: 048
     Dates: start: 20020323
  55. ETODOLAC [Concomitant]
     Route: 048
     Dates: start: 20051208, end: 20070709
  56. PREDNISOLONE [Concomitant]
     Route: 048
     Dates: start: 20060105, end: 20070718
  57. CALCIUM CARBONATE [Concomitant]
     Route: 048
     Dates: start: 20060726
  58. CIMETIDINE [Concomitant]
     Route: 048
     Dates: start: 20060726
  59. ZOLPIDEM [Concomitant]
     Route: 048
     Dates: start: 20070628

REACTIONS (1)
  - Tuberculous pleurisy [Recovered/Resolved]
